FAERS Safety Report 13143991 (Version 1)
Quarter: 2017Q1

REPORT INFORMATION
  Report Type: Spontaneous
  Country: US (occurrence: US)
  Receive Date: 20170124
  Receipt Date: 20170124
  Transmission Date: 20170428
  Serious: Yes (Life-Threatening)
  Sender: FDA-Public Use
  Company Number: None

PATIENT
  Age: 68 Year
  Sex: Male
  Weight: 77.5 kg

DRUGS (1)
  1. BUPROPION. [Suspect]
     Active Substance: BUPROPION
     Indication: DEPRESSION
     Dosage: 100 MG AM PO
     Route: 048
     Dates: start: 20161012, end: 20161101

REACTIONS (2)
  - Drug effect incomplete [None]
  - Suicidal ideation [None]

NARRATIVE: CASE EVENT DATE: 20161031
